FAERS Safety Report 18331519 (Version 2)
Quarter: 2020Q4

REPORT INFORMATION
  Report Type: Spontaneous
  Country: US (occurrence: US)
  Receive Date: 20200930
  Receipt Date: 20201009
  Transmission Date: 20210113
  Serious: Yes (Hospitalization, Other)
  Sender: FDA-Public Use
  Company Number: US-ASTRAZENECA-2020SF25232

PATIENT
  Age: 17123 Day
  Sex: Male
  Weight: 113.9 kg

DRUGS (22)
  1. LISINOPRIL. [Concomitant]
     Active Substance: LISINOPRIL
  2. FARXIGA [Suspect]
     Active Substance: DAPAGLIFLOZIN PROPANEDIOL
     Indication: TYPE 2 DIABETES MELLITUS
     Route: 048
     Dates: start: 20150616, end: 201808
  3. FARXIGA [Suspect]
     Active Substance: DAPAGLIFLOZIN PROPANEDIOL
     Indication: WEIGHT DECREASED
     Route: 048
     Dates: start: 20180120
  4. CLARITHROMYCIN. [Concomitant]
     Active Substance: CLARITHROMYCIN
  5. FARXIGA [Suspect]
     Active Substance: DAPAGLIFLOZIN PROPANEDIOL
     Indication: WEIGHT DECREASED
     Route: 048
     Dates: start: 20150616, end: 201808
  6. FARXIGA [Suspect]
     Active Substance: DAPAGLIFLOZIN PROPANEDIOL
     Indication: BLOOD PRESSURE DECREASED
     Route: 048
     Dates: start: 20150616, end: 201808
  7. FARXIGA [Suspect]
     Active Substance: DAPAGLIFLOZIN PROPANEDIOL
     Indication: TYPE 2 DIABETES MELLITUS
     Route: 048
     Dates: start: 20180120
  8. FARXIGA [Suspect]
     Active Substance: DAPAGLIFLOZIN PROPANEDIOL
     Indication: BLOOD PRESSURE DECREASED
     Route: 048
     Dates: start: 20180120
  9. ATORVASTATIN [Concomitant]
     Active Substance: ATORVASTATIN
  10. APRISO [Concomitant]
     Active Substance: MESALAMINE
  11. AZITHROMYCIN ANHYDROUS. [Concomitant]
     Active Substance: AZITHROMYCIN ANHYDROUS
  12. PRAVASTATIN. [Concomitant]
     Active Substance: PRAVASTATIN
  13. CEFUROXIME. [Concomitant]
     Active Substance: CEFUROXIME
  14. METFORMIN [Concomitant]
     Active Substance: METFORMIN HYDROCHLORIDE
  15. KOMBIGLYZE XR [Concomitant]
     Active Substance: METFORMIN HYDROCHLORIDE\SAXAGLIPTIN HYDROCHLORIDE
  16. SITAGLIPTIN [Concomitant]
     Active Substance: SITAGLIPTIN
  17. FLUTICASONE. [Concomitant]
     Active Substance: FLUTICASONE
  18. BENZONATATE. [Concomitant]
     Active Substance: BENZONATATE
  19. ANDROGEL [Concomitant]
     Active Substance: TESTOSTERONE
  20. METRONIDAZOLE. [Concomitant]
     Active Substance: METRONIDAZOLE
  21. SEMAGLUTIDE [Concomitant]
     Active Substance: SEMAGLUTIDE
  22. SUPRAX [Concomitant]
     Active Substance: CEFIXIME

REACTIONS (13)
  - Fournier^s gangrene [Unknown]
  - Scrotal abscess [Unknown]
  - Sepsis [Unknown]
  - Septic shock [Unknown]
  - Renal tubular necrosis [Unknown]
  - Deformity [Unknown]
  - Pain [Unknown]
  - Scar [Unknown]
  - Anal incontinence [Unknown]
  - Necrotising fasciitis [Unknown]
  - Renal failure [Unknown]
  - Acute kidney injury [Unknown]
  - Nerve injury [Unknown]

NARRATIVE: CASE EVENT DATE: 20160213
